FAERS Safety Report 9305847 (Version 2)
Quarter: 2013Q2

REPORT INFORMATION
  Report Type: Spontaneous
  Country: US (occurrence: None)
  Receive Date: 20130520
  Receipt Date: 20130617
  Transmission Date: 20140414
  Serious: No
  Sender: FDA-Public Use
  Company Number: 2013US001583

PATIENT
  Age: 56 Year
  Sex: Male
  Weight: 67 kg

DRUGS (6)
  1. ICLUSIG [Suspect]
     Indication: ACUTE LYMPHOCYTIC LEUKAEMIA
     Route: 048
     Dates: start: 20130211, end: 20130422
  2. BACTRIM [Concomitant]
  3. ZOVIRAX (ACICLOVIR) [Concomitant]
  4. FLUCONAZOLE (FLUCONAZOLE) [Concomitant]
  5. TOPROL (METOPROLOL SUCCINATE) [Concomitant]
  6. RIMANTADINE (RIMANTADINE) [Concomitant]

REACTIONS (5)
  - Renal disorder [None]
  - Asthenia [None]
  - Hepatic enzyme increased [None]
  - Graft versus host disease [None]
  - Condition aggravated [None]
